FAERS Safety Report 24341837 (Version 1)
Quarter: 2024Q3

REPORT INFORMATION
  Report Type: Spontaneous
  Country: US (occurrence: US)
  Receive Date: 20240920
  Receipt Date: 20240920
  Transmission Date: 20241016
  Serious: Yes (Other)
  Sender: NOVO NORDISK
  Company Number: US-NOVOPROD-1282972

PATIENT
  Sex: Female

DRUGS (1)
  1. OZEMPIC [Suspect]
     Active Substance: SEMAGLUTIDE
     Indication: Product used for unknown indication
     Dosage: 2 MG
     Route: 058

REACTIONS (7)
  - Spinal cord disorder [Unknown]
  - Eczema [Unknown]
  - Herpes zoster [Unknown]
  - Hearing aid user [Unknown]
  - Memory impairment [Unknown]
  - Varicella [Unknown]
  - Hypersensitivity [Unknown]
